FAERS Safety Report 9010206 (Version 1)
Quarter: 2013Q1

REPORT INFORMATION
  Report Type: Spontaneous
  Country: US (occurrence: US)
  Receive Date: 20130110
  Receipt Date: 20130110
  Transmission Date: 20140127
  Serious: Yes (Other)
  Sender: FDA-Public Use
  Company Number: US-MERCK-1201USA04192

PATIENT
  Age: 6 Year
  Sex: Female
  Weight: 19.5 kg

DRUGS (3)
  1. SINGULAIR [Suspect]
     Indication: ASTHMA
     Dosage: 5 MG, QD
     Route: 048
     Dates: start: 20090401, end: 20091201
  2. XOPENEX [Concomitant]
  3. NASONEX [Concomitant]

REACTIONS (5)
  - Suicidal ideation [Recovering/Resolving]
  - Educational problem [Recovering/Resolving]
  - Mood swings [Recovering/Resolving]
  - Depression [Recovering/Resolving]
  - Anxiety [Recovering/Resolving]
